FAERS Safety Report 8513586-2 (Version None)
Quarter: 2012Q3

REPORT INFORMATION
  Report Type: 
  Country: None (occurrence: None)
  Receive Date: 20120717
  Receipt Date: 20120711
  Transmission Date: 20120928
  Serious: No
  Sender: FDA-Public Use
  Company Number: US-PFIZER INC-2012167846

PATIENT
  Sex: Male

DRUGS (1)
  1. INLYTA [Suspect]
     Dosage: 5 MG (1 TABLET) TWICE DAILY
     Route: 048
     Dates: start: 20120703, end: 20120711

REACTIONS (1)
  - HYPERTENSION [None]
